FAERS Safety Report 9858459 (Version 1)
Quarter: 2014Q1

REPORT INFORMATION
  Report Type: Spontaneous
  Country: TR (occurrence: None)
  Receive Date: 20140129
  Receipt Date: 20140129
  Transmission Date: 20141002
  Serious: Yes (Hospitalization)
  Sender: FDA-Public Use
  Company Number: 2014-TR-000606

PATIENT
  Age: 9 Year
  Sex: Male

DRUGS (1)
  1. ASPARAGINASE (UNSPECIFIED) (ASPARAGINASE) [Suspect]
     Indication: BURKITT^S LYMPHOMA

REACTIONS (5)
  - Respiratory distress [None]
  - Ascites [None]
  - Pancreatitis necrotising [None]
  - Pyrexia [None]
  - Neutropenia [None]
